FAERS Safety Report 7721674-3 (Version None)
Quarter: 2011Q3

REPORT INFORMATION
  Report Type: 
  Country: None (occurrence: None)
  Receive Date: 20110831
  Receipt Date: 20110826
  Transmission Date: 20111222
  Serious: Yes (Hospitalization)
  Sender: FDA-Public Use
  Company Number: US-GLAXOSMITHKLINE-A0942523A

PATIENT
  Age: 64 Year
  Sex: Male

DRUGS (19)
  1. DIAZEPAM [Concomitant]
  2. ZOLPIDEM TARTRATE [Concomitant]
  3. DILTIAZEM [Concomitant]
  4. SINGULAIR [Concomitant]
  5. THEOPHYLLINE [Concomitant]
  6. FUROSEMIDE [Concomitant]
  7. PANTOPRAZOLE SODIUM [Concomitant]
  8. UNSPECIFIED MEDICATION [Concomitant]
  9. POTASSIUM CHLORIDE [Concomitant]
  10. ATROVENT [Concomitant]
  11. SYMBICORT [Concomitant]
  12. DIGOXIN [Concomitant]
  13. OXYGEN [Concomitant]
  14. VENTOLIN HFA [Suspect]
     Indication: CHRONIC OBSTRUCTIVE PULMONARY DISEASE
     Dosage: 1PUFF AS REQUIRED
     Route: 055
     Dates: start: 20070801
  15. FISH OIL [Concomitant]
  16. PREDNISONE [Concomitant]
  17. NEXIUM [Concomitant]
  18. SPIRIVA [Concomitant]
  19. ALBUTEROL SULFATE NEBULIZER [Concomitant]

REACTIONS (6)
  - DRUG INEFFECTIVE [None]
  - CHRONIC OBSTRUCTIVE PULMONARY DISEASE [None]
  - VIRAL INFECTION [None]
  - SEASONAL ALLERGY [None]
  - INFECTION [None]
  - TOTAL LUNG CAPACITY DECREASED [None]
